FAERS Safety Report 8304352-1 (Version None)
Quarter: 2012Q2

REPORT INFORMATION
  Report Type: 
  Country: None (occurrence: None)
  Receive Date: 20120423
  Receipt Date: 20120327
  Transmission Date: 20120825
  Serious: Yes (Other)
  Sender: FDA-Public Use
  Company Number: US-TYCO HEALTHCARE/MALLINCKRODT-T200801574

PATIENT

DRUGS (38)
  1. PROPOXYPHENE NAPSYLATE W/PARACETAMOL [Concomitant]
     Indication: PAIN
     Dosage: UNK, PRN
     Dates: start: 20060101
  2. ASPIRIN [Concomitant]
     Indication: ANTIPLATELET THERAPY
     Dosage: 81 MG, QD
  3. METOPROLOL TARTRATE [Concomitant]
     Dosage: 50 MG, QD
  4. NEURONTIN [Concomitant]
     Dosage: 300 MG, BID
  5. INSULIN [Concomitant]
     Dosage: SLIDING SCALE
  6. PROGRAF [Concomitant]
     Indication: PROPHYLAXIS AGAINST TRANSPLANT REJECTION
     Dosage: .5 MG, BID
     Dates: start: 20060101
  7. VITAMIN D [Concomitant]
     Dosage: 1.25 MG, PER MONTH
     Dates: start: 20070101
  8. ACTOS [Concomitant]
     Dosage: 30 MG, QD
  9. MYCOPHENOLATE MOFETIL (CELLCEPT) [Concomitant]
     Dosage: 500 MG, BID
  10. HUMALOG [Concomitant]
     Indication: DIABETES MELLITUS
     Dosage: 5 IU, TID
     Dates: start: 20060101
  11. SODIUM BICARBONATE [Concomitant]
     Indication: GASTROOESOPHAGEAL REFLUX DISEASE
     Dosage: 650 MG, BID
     Dates: start: 20050101
  12. PHOSPHORUS [Concomitant]
     Indication: BLOOD PHOSPHORUS DECREASED
     Dosage: 250 MG, QD
     Dates: start: 20040101
  13. OMNISCAN [Suspect]
     Indication: FISTULOGRAM
     Dosage: 35 ML (CC), SINGLE
     Route: 042
     Dates: start: 20051006, end: 20051006
  14. OMNISCAN [Suspect]
     Indication: ARTERIOGRAM
     Dosage: 90 ML (CC), SINGLE
     Route: 042
     Dates: start: 20060105, end: 20060105
  15. HYDROCHLOROTHIAZIDE [Concomitant]
     Indication: ANTIINFLAMMATORY THERAPY
     Dosage: 12.5 MG, QD
     Dates: start: 20060101
  16. PLETAL [Concomitant]
     Indication: ANGIOPATHY
     Dosage: 50 MG, BID
     Dates: start: 20040101
  17. ATROPINE W/DIPHENOXYLATE           /00034001/ [Concomitant]
     Indication: DIARRHOEA
     Dosage: UNK, PRN
     Dates: start: 20060101
  18. ACYCLOVIR [Concomitant]
     Dosage: 400 MG, BID
  19. OPTIMARK [Suspect]
     Indication: ANGIOGRAM
     Dosage: 40 ML (CC), UNK
     Route: 042
     Dates: start: 20040205, end: 20040205
  20. CENTRUM SILVER                     /01292501/ [Concomitant]
     Indication: SUPPLEMENTATION THERAPY
     Dosage: UNK
     Dates: start: 20060101
  21. AMITRIPTYLINE HCL [Concomitant]
     Indication: SLEEP DISORDER
     Dosage: 25 MG, QD (QHS)
     Dates: start: 20040101
  22. PROGRAF [Concomitant]
     Dosage: 1 MG, BID
  23. LANTUS [Concomitant]
     Indication: DIABETES MELLITUS
     Dosage: 40 IU, QD (QHS)
     Dates: start: 20060101
  24. SULFAMETHOXAZOLE AND TRIMETHOPRIM [Concomitant]
     Indication: PROPHYLAXIS AGAINST TRANSPLANT REJECTION
     Dosage: ONE, QD
     Dates: start: 20060101
  25. NEXIUM [Concomitant]
     Dosage: 40 MG, QD
  26. SULFA                              /00150702/ [Concomitant]
     Indication: INFECTION PROPHYLAXIS
     Dates: start: 20060101
  27. HYDROCHLOROTHIAZIDE [Concomitant]
     Dosage: 25 MG, QD
  28. HUMALOG [Concomitant]
     Dosage: 5 IU, BID, PRN
  29. PREDNISONE TAB [Concomitant]
     Indication: PROPHYLAXIS AGAINST TRANSPLANT REJECTION
     Dosage: 5 MG, QD
     Dates: start: 20060101
  30. DOCUSATE [Concomitant]
     Dosage: UNK
  31. ACTOS [Concomitant]
     Indication: DIABETES MELLITUS
     Dosage: 15 MG, QD
     Dates: start: 20060101
  32. MYCOPHENOLATE MOFETIL (CELLCEPT) [Concomitant]
     Indication: PROPHYLAXIS AGAINST TRANSPLANT REJECTION
     Dosage: 250 MG, QID
     Dates: start: 20060101
  33. PROMETHAZINE [Concomitant]
     Indication: NAUSEA
     Dosage: UNK, PRN
     Dates: start: 20060101
  34. MAG-OX [Concomitant]
     Dosage: 400 MG, QD
  35. PLAVIX [Concomitant]
     Indication: ARTERIAL DISORDER
     Dosage: 75 MG, QD
     Dates: start: 20050101
  36. VYTORIN [Concomitant]
     Indication: BLOOD CHOLESTEROL INCREASED
     Dosage: 10/40, QD
     Dates: start: 20030101
  37. ZINC SULFATE [Concomitant]
     Dosage: 50 MG, QD
  38. DARVOCET [Concomitant]
     Dosage: UNK

REACTIONS (20)
  - BACK PAIN [None]
  - CONSTIPATION [None]
  - OFF LABEL USE [None]
  - OEDEMA PERIPHERAL [None]
  - DRUG PRESCRIBING ERROR [None]
  - WEIGHT INCREASED [None]
  - DEHYDRATION [None]
  - VITAMIN D DEFICIENCY [None]
  - SLEEP APNOEA SYNDROME [None]
  - NEPHROGENIC SYSTEMIC FIBROSIS [None]
  - MYOCARDIAL INFARCTION [None]
  - SUDDEN HEARING LOSS [None]
  - DEPRESSION [None]
  - TRANSPLANT FAILURE [None]
  - ZINC DEFICIENCY [None]
  - OSTEOARTHRITIS [None]
  - SPINAL OSTEOARTHRITIS [None]
  - EXOSTOSIS [None]
  - DIARRHOEA [None]
  - ABDOMINAL PAIN [None]
